FAERS Safety Report 7880490-2 (Version None)
Quarter: 2011Q4

REPORT INFORMATION
  Report Type: 
  Country: None (occurrence: None)
  Receive Date: 20111101
  Receipt Date: 20111026
  Transmission Date: 20120403
  Serious: Yes (Other)
  Sender: FDA-Public Use
  Company Number: IE-AMGEN-IRLSP2011026754

PATIENT
  Age: 79 Year
  Sex: Male

DRUGS (7)
  1. ARANESP [Suspect]
     Indication: RENAL FAILURE
     Dosage: 150 MUG, QWK
     Route: 058
     Dates: start: 20110114
  2. RAMIPRIL [Concomitant]
     Indication: BLOOD PRESSURE
     Dosage: 10 MG, QD
     Route: 048
  3. FUROSEMIDE [Concomitant]
     Dosage: 40 MUG, UNK
  4. ARANESP [Suspect]
  5. CARDICOR [Concomitant]
     Dosage: 1.25 MG, QD
     Route: 048
  6. LIPITOR [Concomitant]
     Indication: BLOOD CHOLESTEROL
     Dosage: 40 MG, UNK
     Route: 048
  7. NU-SEALS [Concomitant]
     Dosage: 75 MG, UNK
     Route: 048

REACTIONS (2)
  - DEAFNESS [None]
  - VERTIGO [None]
